FAERS Safety Report 24577181 (Version 2)
Quarter: 2024Q4

REPORT INFORMATION
  Report Type: Spontaneous
  Country: US (occurrence: US)
  Receive Date: 20241104
  Receipt Date: 20241222
  Transmission Date: 20250114
  Serious: No
  Sender: BRISTOL-MYERS SQUIBB COMPANY
  Company Number: US-BRISTOL-MYERS SQUIBB COMPANY-2024-171176

PATIENT
  Age: 76 Year
  Sex: Female

DRUGS (1)
  1. LENALIDOMIDE [Suspect]
     Active Substance: LENALIDOMIDE
     Indication: Left ventricular failure
     Route: 048

REACTIONS (4)
  - Vomiting [Recovered/Resolved]
  - Illness [Recovered/Resolved]
  - Off label use [Unknown]
  - Malaise [Recovered/Resolved]
